FAERS Safety Report 9765120 (Version 1)
Quarter: 2013Q4

REPORT INFORMATION
  Report Type: Spontaneous
  Country: US (occurrence: None)
  Receive Date: 20131213
  Receipt Date: 20131213
  Transmission Date: 20140711
  Serious: Yes (Other)
  Sender: FDA-Public Use
  Company Number: 2013SA030414

PATIENT
  Sex: Female

DRUGS (3)
  1. ICY HOT [Suspect]
     Indication: BACK PAIN
     Route: 061
  2. PREVACID [Concomitant]
  3. PAXIL [Concomitant]

REACTIONS (5)
  - Scar [None]
  - Application site burn [None]
  - Pruritus [None]
  - Application site erythema [None]
  - Skin discolouration [None]
